FAERS Safety Report 16899735 (Version 1)
Quarter: 2019Q4

REPORT INFORMATION
  Report Type: Report from Study
  Country: US (occurrence: US)
  Receive Date: 20191009
  Receipt Date: 20191009
  Transmission Date: 20200122
  Serious: Yes (Hospitalization, Other)
  Sender: FDA-Public Use
  Company Number: US-GILEAD-2019-0432205

PATIENT
  Age: 36 Year
  Sex: Female

DRUGS (11)
  1. PULMOZYME [Concomitant]
     Active Substance: DORNASE ALFA
  2. WARFARIN [Concomitant]
     Active Substance: WARFARIN
  3. AZTREONAM LYSINE [Suspect]
     Active Substance: AZTREONAM LYSINE
     Indication: CYSTIC FIBROSIS
     Dosage: 1 VIAL VIA NEBULIZER TID FOR 28 DAYS ON AND 28 DAYS OFF
     Route: 065
     Dates: start: 20190409
  4. AZITHROMYCIN ANHYDROUS. [Concomitant]
     Active Substance: AZITHROMYCIN ANHYDROUS
  5. HUMALOG [Concomitant]
     Active Substance: INSULIN LISPRO
  6. MONTELUKAST [Concomitant]
     Active Substance: MONTELUKAST SODIUM
  7. CREON [Concomitant]
     Active Substance: PANCRELIPASE AMYLASE\PANCRELIPASE LIPASE\PANCRELIPASE PROTEASE
  8. TOBI [Concomitant]
     Active Substance: TOBRAMYCIN
  9. XARELTO [Concomitant]
     Active Substance: RIVAROXABAN
  10. LANTUS [Concomitant]
     Active Substance: INSULIN GLARGINE
  11. ENOXAPARIN [Concomitant]
     Active Substance: ENOXAPARIN

REACTIONS (2)
  - Pulmonary embolism [Unknown]
  - Lung disorder [Unknown]

NARRATIVE: CASE EVENT DATE: 20190914
